FAERS Safety Report 21765053 (Version 1)
Quarter: 2022Q4

REPORT INFORMATION
  Report Type: Spontaneous
  Country: US (occurrence: None)
  Receive Date: 20221221
  Receipt Date: 20221221
  Transmission Date: 20230113
  Serious: No
  Sender: FDA-Public Use
  Company Number: None

PATIENT

DRUGS (2)
  1. METHOTREXATE [Suspect]
     Active Substance: METHOTREXATE
     Route: 048
  2. FOLIC ACID [Suspect]
     Active Substance: FOLIC ACID
     Route: 048

REACTIONS (4)
  - Epistaxis [None]
  - Product physical issue [None]
  - Thrombocytopenia [None]
  - Product colour issue [None]
